FAERS Safety Report 8807625 (Version 2)
Quarter: 2012Q4

REPORT INFORMATION
  Report Type: 
  Country: JP (occurrence: JP)
  Receive Date: 20120925
  Receipt Date: 20121009
  Transmission Date: 20130627
  Serious: Yes (Other)
  Sender: FDA-Public Use
  Company Number: JP-TEVA-359051ISR

PATIENT
  Age: 27 Year
  Sex: Male

DRUGS (3)
  1. LOPERAMIDE HCL [Suspect]
     Indication: DIARRHOEA
     Route: 048
  2. ALBUMIN TANNATE [Concomitant]
  3. COMELIAN KOWA TAB.50 [Concomitant]

REACTIONS (3)
  - Swelling [Not Recovered/Not Resolved]
  - Rash [Not Recovered/Not Resolved]
  - Pyrexia [Not Recovered/Not Resolved]
